FAERS Safety Report 23482849 (Version 1)
Quarter: 2024Q1

REPORT INFORMATION
  Report Type: Spontaneous
  Country: US (occurrence: None)
  Receive Date: 20240205
  Receipt Date: 20240205
  Transmission Date: 20240410
  Serious: Yes (Other)
  Sender: FDA-Public Use
  Company Number: None

PATIENT
  Age: 49 Year
  Sex: Female

DRUGS (1)
  1. AFINITOR [Suspect]
     Active Substance: EVEROLIMUS
     Indication: Tuberous sclerosis complex
     Dosage: FREQUENCY : DAILY;?

REACTIONS (7)
  - Skin bacterial infection [None]
  - Oral bacterial infection [None]
  - Fungal infection [None]
  - Herpes zoster [None]
  - Iron deficiency anaemia [None]
  - Pain [None]
  - Nausea [None]
